FAERS Safety Report 4280493-3 (Version None)
Quarter: 2004Q1

REPORT INFORMATION
  Report Type: 
  Country: None (occurrence: None)
  Receive Date: 20040127
  Receipt Date: 20040112
  Transmission Date: 20041129
  Serious: Yes (Death, Life-Threatening, Hospitalization)
  Sender: FDA-Public Use
  Company Number: 2004CG00072

PATIENT
  Age: 89 Year
  Sex: Male

DRUGS (6)
  1. MOPRAL [Suspect]
     Dosage: 20 MG DAILY PO
     Route: 048
  2. LASILIX [Suspect]
     Dosage: 60 MG DAILY PO
     Route: 048
  3. FOZITEC [Suspect]
  4. CALCIDIA [Concomitant]
  5. DIFFU K [Concomitant]
  6. XATRAL [Concomitant]

REACTIONS (5)
  - ASTHENIA [None]
  - C-REACTIVE PROTEIN INCREASED [None]
  - HAPTOGLOBIN DECREASED [None]
  - HEPATIC FAILURE [None]
  - HEPATITIS ACUTE [None]
